FAERS Safety Report 9482476 (Version 1)
Quarter: 2013Q3

REPORT INFORMATION
  Report Type: Spontaneous
  Country: LB (occurrence: LB)
  Receive Date: 20130828
  Receipt Date: 20130828
  Transmission Date: 20140515
  Serious: Yes (Other)
  Sender: FDA-Public Use
  Company Number: PHHY2013LB091400

PATIENT
  Age: 72 Year
  Sex: Female

DRUGS (8)
  1. PACLITAXEL [Suspect]
     Indication: BREAST CANCER
     Dosage: 80 MG/M2, UNK
  2. CYCLOPHOSPHAMIDE [Concomitant]
     Indication: BREAST CANCER
  3. EPIRUBICIN [Concomitant]
     Indication: BREAST CANCER
  4. FLUOROURACIL [Concomitant]
     Indication: BREAST CANCER
  5. DEXAMETHASONE [Concomitant]
  6. GRANISETRON [Concomitant]
  7. DIPHENHYDRAMINE [Concomitant]
  8. RANITIDINE [Concomitant]

REACTIONS (12)
  - Palmar-plantar erythrodysaesthesia syndrome [Recovering/Resolving]
  - Erythema [Recovering/Resolving]
  - Dysaesthesia [Recovering/Resolving]
  - Oedema peripheral [Recovering/Resolving]
  - Paraesthesia [Recovering/Resolving]
  - Blister [Recovering/Resolving]
  - Skin ulcer [Recovering/Resolving]
  - Rash erythematous [Recovering/Resolving]
  - Skin oedema [Recovering/Resolving]
  - Skin exfoliation [Recovering/Resolving]
  - Skin lesion [Recovering/Resolving]
  - Onychoclasis [Recovering/Resolving]
